FAERS Safety Report 26064158 (Version 1)
Quarter: 2025Q4

REPORT INFORMATION
  Report Type: Spontaneous
  Country: JP (occurrence: JP)
  Receive Date: 20251119
  Receipt Date: 20251119
  Transmission Date: 20260117
  Serious: Yes (Death, Other)
  Sender: RANBAXY
  Company Number: JP-SUN PHARMACEUTICAL INDUSTRIES LTD-2025RR-535975

PATIENT
  Age: 71 Year
  Sex: Female

DRUGS (4)
  1. DOBUTAMINE [Suspect]
     Active Substance: DOBUTAMINE HYDROCHLORIDE
     Indication: Cardiac failure
     Dosage: 2 MICROGRAM/KILOGRAM/MINUTE
     Route: 040
  2. DOBUTAMINE [Suspect]
     Active Substance: DOBUTAMINE HYDROCHLORIDE
     Indication: Hypertrophic cardiomyopathy
     Dosage: 3 MICROGRAM/KILOGRAMMINUTE
     Route: 040
  3. MORPHINE [Suspect]
     Active Substance: MORPHINE
     Indication: Pain
     Dosage: 0.3 MILLIGRAM/HOUR
     Route: 058
  4. MORPHINE [Suspect]
     Active Substance: MORPHINE
     Dosage: 0.5 MILLIGRAM/HOUR
     Route: 058

REACTIONS (2)
  - Disease progression [Fatal]
  - Nausea [Unknown]
